FAERS Safety Report 8835462 (Version 2)
Quarter: 2013Q1

REPORT INFORMATION
  Report Type: Spontaneous
  Country: BR (occurrence: BR)
  Receive Date: 20121011
  Receipt Date: 20130219
  Transmission Date: 20140127
  Serious: Yes (Other)
  Sender: FDA-Public Use
  Company Number: PHHY2012BR089619

PATIENT
  Sex: Female

DRUGS (9)
  1. DIOVAN TRIPLE [Suspect]
     Indication: HYPERTENSION
     Dosage: 1 DF (160/12.5/5MG) IN BREAKFAST
  2. PURAN T4 [Concomitant]
     Dosage: 100 UG, DAILY
  3. LIPLESS [Concomitant]
     Indication: BLOOD CHOLESTEROL
     Dosage: 1 DF, DAILY
  4. LIPLESS [Concomitant]
     Indication: BLOOD TRIGLYCERIDES
  5. LIPLESS [Concomitant]
     Indication: DIABETES MELLITUS MANAGEMENT
  6. CLINFAR [Concomitant]
     Indication: BLOOD CHOLESTEROL
     Dosage: 1 DF, DAILY
  7. CLINFAR [Concomitant]
     Indication: BLOOD TRIGLYCERIDES
  8. PLANTABEN [Concomitant]
     Indication: ABDOMINAL DISCOMFORT
     Dosage: 1 DF, DAILY
  9. OLCADIL [Concomitant]
     Indication: NERVOUSNESS
     Dosage: 3 MG, DAILY

REACTIONS (9)
  - Pulmonary mass [Not Recovered/Not Resolved]
  - Pulmonary fibrosis [Not Recovered/Not Resolved]
  - Uterine inflammation [Recovered/Resolved]
  - Fallopian tube disorder [Recovered/Resolved]
  - Umbilical hernia [Recovered/Resolved]
  - Nervousness [Not Recovered/Not Resolved]
  - Erythema [Not Recovered/Not Resolved]
  - Diverticulitis [Not Recovered/Not Resolved]
  - Blood pressure increased [Not Recovered/Not Resolved]
